FAERS Safety Report 24077685 (Version 1)
Quarter: 2024Q3

REPORT INFORMATION
  Report Type: Spontaneous
  Country: GB (occurrence: GB)
  Receive Date: 20240711
  Receipt Date: 20240711
  Transmission Date: 20241016
  Serious: Yes (Disabling)
  Sender: AUROBINDO
  Company Number: GB-MHRA-MED-202405060908552160-VRYJP

PATIENT
  Sex: Female
  Weight: 56 kg

DRUGS (1)
  1. SERTRALINE [Suspect]
     Active Substance: SERTRALINE HYDROCHLORIDE
     Indication: Depressed mood
     Dosage: 50MG ONCE A DAY AT NIGHT
     Route: 065
     Dates: start: 20201001, end: 20240429

REACTIONS (1)
  - Breast enlargement [Recovered/Resolved with Sequelae]
